FAERS Safety Report 14909958 (Version 1)
Quarter: 2018Q2

REPORT INFORMATION
  Report Type: Spontaneous
  Country: US (occurrence: US)
  Receive Date: 20180517
  Receipt Date: 20180517
  Transmission Date: 20180711
  Serious: No
  Sender: FDA-Public Use
  Company Number: US-TARO-2017TAR01059

PATIENT
  Age: 55 Year
  Sex: Female
  Weight: 83.9 kg

DRUGS (2)
  1. TERCONAZOLE VAGINAL CREAM 0.8% [Suspect]
     Active Substance: TERCONAZOLE
     Dosage: 1 DOSAGE UNITS, 1X/DAY
     Route: 067
  2. TERCONAZOLE VAGINAL CREAM 0.8% [Suspect]
     Active Substance: TERCONAZOLE
     Indication: FUNGAL INFECTION
     Dosage: 1 DOSAGE UNITS, 1X/DAY
     Route: 067
     Dates: start: 20171206

REACTIONS (3)
  - Vaginal haemorrhage [Not Recovered/Not Resolved]
  - Vaginal laceration [Not Recovered/Not Resolved]
  - Product quality issue [Not Recovered/Not Resolved]
